FAERS Safety Report 5081986-1 (Version None)
Quarter: 2006Q3

REPORT INFORMATION
  Report Type: 
  Country: None (occurrence: None)
  Receive Date: 20060811
  Receipt Date: 20060731
  Transmission Date: 20061208
  Serious: Yes (Hospitalization)
  Sender: FDA-Public Use
  Company Number: HQWYE548931JUL06

PATIENT
  Age: 53 Year
  Sex: Male

DRUGS (1)
  1. ARTANE [Suspect]
     Indication: DYSKINESIA
     Dosage: 3 MG

REACTIONS (2)
  - ORAL INTAKE REDUCED [None]
  - TARDIVE DYSKINESIA [None]
